FAERS Safety Report 9802345 (Version 2)
Quarter: 2014Q1

REPORT INFORMATION
  Report Type: Report from Study
  Country: FR (occurrence: FR)
  Receive Date: 20140107
  Receipt Date: 20140110
  Transmission Date: 20141002
  Serious: Yes (Hospitalization, Other)
  Sender: FDA-Public Use
  Company Number: FR-ONYX-2013-2157

PATIENT
  Age: 72 Year
  Sex: Female

DRUGS (22)
  1. CARFILZOMIB [Suspect]
     Indication: PLASMA CELL MYELOMA
     Route: 042
     Dates: start: 20130701, end: 20130702
  2. CARFILZOMIB [Suspect]
     Route: 042
     Dates: start: 20130708, end: 20130716
  3. CARFILZOMIB [Suspect]
     Route: 042
     Dates: start: 20130729, end: 20131206
  4. CARFILZOMIB [Suspect]
     Route: 042
     Dates: start: 20131227, end: 20131227
  5. DEXAMETHASONE [Suspect]
     Indication: PLASMA CELL MYELOMA
     Route: 048
     Dates: start: 20130701, end: 20130805
  6. DEXAMETHASONE [Suspect]
     Route: 048
     Dates: start: 20130806, end: 20130806
  7. DEXAMETHASONE [Suspect]
     Route: 048
     Dates: start: 20130812
  8. CIPRALAN [Concomitant]
     Indication: HYPERTENSION
     Route: 048
     Dates: start: 2000
  9. AUGMENTIN [Concomitant]
     Indication: ANTIBIOTIC PROPHYLAXIS
     Route: 048
     Dates: start: 20130609, end: 20130615
  10. AUGMENTIN [Concomitant]
     Indication: SINUSITIS
     Route: 048
     Dates: start: 20131030, end: 20131107
  11. AUGMENTIN [Concomitant]
     Route: 048
     Dates: start: 20131116, end: 20131126
  12. AUGMENTIN [Concomitant]
     Route: 048
     Dates: start: 20131205
  13. ALLOPURINOL [Concomitant]
     Indication: PROPHYLAXIS
     Route: 048
     Dates: start: 20130701
  14. AMOXICILLINE [Concomitant]
     Indication: ANTIBIOTIC PROPHYLAXIS
     Route: 048
     Dates: start: 20130701
  15. ELUDRIL [Concomitant]
     Indication: PROPHYLAXIS
     Route: 061
     Dates: start: 20130701
  16. ESOMEPRAZOLE [Concomitant]
     Indication: PROPHYLAXIS
     Route: 048
     Dates: start: 20130701
  17. LEXOMIL [Concomitant]
     Indication: DEPRESSION
     Route: 048
     Dates: start: 20130701
  18. SODIUM BICARBONATE [Concomitant]
     Indication: PROPHYLAXIS
     Route: 061
     Dates: start: 20130701
  19. VALACYCLOVIR [Concomitant]
     Indication: ANTIVIRAL PROPHYLAXIS
     Route: 048
     Dates: start: 20130701
  20. NAXONEX [Concomitant]
     Indication: SINUSITIS
     Route: 045
     Dates: start: 20131129
  21. POLYVALENT GAMMA GLOBULINS [Concomitant]
     Indication: PROPHYLAXIS
  22. TAVANIC [Concomitant]
     Indication: SINUSITIS
     Route: 048
     Dates: start: 20131129

REACTIONS (1)
  - Hepatocellular injury [Recovered/Resolved]
